FAERS Safety Report 6186241-4 (Version None)
Quarter: 2009Q2

REPORT INFORMATION
  Report Type: 
  Country: None (occurrence: None)
  Receive Date: 20090511
  Receipt Date: 20090508
  Transmission Date: 20091009
  Serious: Yes (Death)
  Sender: FDA-Public Use
  Company Number: PHHY2009CA16507

PATIENT
  Sex: Male

DRUGS (10)
  1. CLOZARIL [Suspect]
     Indication: SCHIZOPHRENIA
     Dosage: UNK
     Dates: start: 20040623
  2. CLOZARIL [Suspect]
     Dosage: 450 MG
     Route: 048
     Dates: start: 20060523, end: 20090428
  3. PANTOPRAZOLE SODIUM [Concomitant]
     Dosage: 40 MG, QD
     Route: 048
  4. CRESTOR [Concomitant]
     Dosage: 10 MG, QD
     Route: 048
  5. BISOPROLOL [Concomitant]
     Dosage: 5 MG, QD
     Route: 048
  6. PERINDOPRIL ERBUMINE [Concomitant]
     Dosage: 2 MG, QD
     Route: 048
  7. CELEXA [Concomitant]
     Dosage: 20 MG, QD
     Route: 048
  8. EFFEXOR XR [Concomitant]
     Dosage: 150 MG, QD
     Route: 048
  9. CLONAZEPAM [Concomitant]
     Dosage: 0.5 MG, BID
     Route: 048
  10. LENOLTECH NO 3 [Concomitant]
     Dosage: 300/15/30MG

REACTIONS (1)
  - SUDDEN DEATH [None]
